FAERS Safety Report 22674418 (Version 3)
Quarter: 2023Q4

REPORT INFORMATION
  Report Type: Spontaneous
  Country: US (occurrence: US)
  Receive Date: 20230705
  Receipt Date: 20231006
  Transmission Date: 20240109
  Serious: No
  Sender: FDA-Public Use
  Company Number: US-INCYTE CORPORATION-2023IN006753

PATIENT

DRUGS (4)
  1. JAKAFI [Suspect]
     Active Substance: RUXOLITINIB
     Indication: Essential thrombocythaemia
     Dosage: 10 MILLIGRAM, QID
     Route: 048
     Dates: start: 202304
  2. JAKAFI [Suspect]
     Active Substance: RUXOLITINIB
     Dosage: 5 MILLIGRAM (2 TABLETS EVERY MORNING AND 1 TABLET EVERY EVENING)
     Route: 048
     Dates: start: 202212
  3. JAKAFI [Suspect]
     Active Substance: RUXOLITINIB
     Dosage: 10MG QAM AND 5MG QPM
     Route: 048
     Dates: start: 202301
  4. JAKAFI [Suspect]
     Active Substance: RUXOLITINIB
     Dosage: 10MG QAM AND 5MG QPM
     Route: 048
     Dates: start: 202306

REACTIONS (3)
  - Diarrhoea [Unknown]
  - Weight increased [Unknown]
  - Off label use [Unknown]

NARRATIVE: CASE EVENT DATE: 20221201
